FAERS Safety Report 23056604 (Version 2)
Quarter: 2024Q2

REPORT INFORMATION
  Report Type: Spontaneous
  Country: IT (occurrence: IT)
  Receive Date: 20231011
  Receipt Date: 20240606
  Transmission Date: 20240716
  Serious: Yes (Other)
  Sender: FDA-Public Use
  Company Number: IT-OTSUKA-2023_025430

PATIENT
  Age: 39 Year
  Sex: Male

DRUGS (5)
  1. CLOZAPINE [Interacting]
     Active Substance: CLOZAPINE
     Indication: Schizophrenia
     Dosage: 600 MILLIGRAM, DAILY
     Route: 048
  2. BREXPIPRAZOLE [Interacting]
     Active Substance: BREXPIPRAZOLE
     Indication: Schizophrenia
     Dosage: 4 MILLIGRAM, ONCE A DAY
     Route: 065
  3. METFORMIN [Concomitant]
     Active Substance: METFORMIN HYDROCHLORIDE
     Indication: Salivary hypersecretion
     Dosage: UNK
     Route: 065
  4. AMITRIPTYLINE [Concomitant]
     Active Substance: AMITRIPTYLINE
     Indication: Salivary hypersecretion
     Dosage: UNK
     Route: 065
  5. VALPROIC ACID [Concomitant]
     Active Substance: VALPROIC ACID
     Indication: Salivary hypersecretion
     Dosage: UNK
     Route: 065

REACTIONS (6)
  - Hallucination, auditory [Unknown]
  - Psychotic symptom [Unknown]
  - Delusion [Unknown]
  - Abnormal behaviour [Unknown]
  - Drug level decreased [Recovering/Resolving]
  - Drug interaction [Unknown]
